FAERS Safety Report 7166667-2 (Version None)
Quarter: 2010Q4

REPORT INFORMATION
  Report Type: 
  Country: None (occurrence: None)
  Receive Date: 20101203
  Receipt Date: 20101122
  Transmission Date: 20110411
  Serious: Yes (Life-Threatening, Hospitalization, Other)
  Sender: FDA-Public Use
  Company Number: 1000007375

PATIENT
  Age: 48 Year
  Sex: Female

DRUGS (2)
  1. CITALOPRAM HYDROBROMIDE [Suspect]
     Indication: MAJOR DEPRESSION
     Dosage: (40 MG),ORAL
     Route: 048
     Dates: start: 20050101, end: 20080217
  2. FUROSEMIDE [Concomitant]

REACTIONS (8)
  - DIARRHOEA [None]
  - ELECTROCARDIOGRAM ST-T SEGMENT DEPRESSION [None]
  - HYPOCHLORAEMIA [None]
  - HYPOKALAEMIA [None]
  - INFLUENZA LIKE ILLNESS [None]
  - LONG QT SYNDROME [None]
  - TORSADE DE POINTES [None]
  - VENTRICULAR TACHYCARDIA [None]
